FAERS Safety Report 7258731-4 (Version None)
Quarter: 2011Q1

REPORT INFORMATION
  Report Type: 
  Country: None (occurrence: None)
  Receive Date: 20110129
  Receipt Date: 20100607
  Transmission Date: 20110831
  Serious: No
  Sender: FDA-Public Use
  Company Number: US-ABBOTT-10P-163-0645511-00

PATIENT
  Sex: Female
  Weight: 65.83 kg

DRUGS (3)
  1. MULTIVITAMIN [Concomitant]
     Indication: VITAMIN SUPPLEMENTATION
  2. HUMIRA [Suspect]
     Indication: RHEUMATOID ARTHRITIS
     Dates: start: 20080101
  3. PROZAC [Concomitant]
     Indication: MOOD SWINGS

REACTIONS (2)
  - PSORIASIS [None]
  - DEVICE MALFUNCTION [None]
